FAERS Safety Report 17465128 (Version 1)
Quarter: 2020Q1

REPORT INFORMATION
  Report Type: Spontaneous
  Country: DE (occurrence: DE)
  Receive Date: 20200226
  Receipt Date: 20200226
  Transmission Date: 20200409
  Serious: Yes (Other)
  Sender: FDA-Public Use
  Company Number: DE-AMGEN-DEUSP2019182120

PATIENT
  Sex: Female

DRUGS (1)
  1. AIMOVIG [Suspect]
     Active Substance: ERENUMAB-AOOE
     Indication: MIGRAINE PROPHYLAXIS
     Dosage: UNK
     Route: 065

REACTIONS (7)
  - Erythema [Unknown]
  - Skin swelling [Unknown]
  - Flushing [Unknown]
  - Urticaria [Unknown]
  - Rash [Unknown]
  - Papule [Unknown]
  - Type I hypersensitivity [Unknown]
